FAERS Safety Report 9476549 (Version 1)
Quarter: 2013Q3

REPORT INFORMATION
  Report Type: Spontaneous
  Country: GB (occurrence: GB)
  Receive Date: 20130826
  Receipt Date: 20130826
  Transmission Date: 20140515
  Serious: Yes (Other)
  Sender: FDA-Public Use
  Company Number: GB-TEVA-428236ISR

PATIENT
  Sex: Male

DRUGS (1)
  1. WARFARIN [Suspect]
     Route: 048

REACTIONS (2)
  - Thrombosis [Unknown]
  - International normalised ratio decreased [Unknown]
